FAERS Safety Report 22324524 (Version 1)
Quarter: 2023Q2

REPORT INFORMATION
  Report Type: Spontaneous
  Country: TR (occurrence: TR)
  Receive Date: 20230516
  Receipt Date: 20230516
  Transmission Date: 20230722
  Serious: Yes (Other)
  Sender: FDA-Public Use
  Company Number: TR-AMGEN-TURSP2023081432

PATIENT

DRUGS (1)
  1. ADALIMUMAB [Suspect]
     Active Substance: ADALIMUMAB
     Indication: Spondyloarthropathy
     Dosage: UNK
     Route: 065

REACTIONS (9)
  - Inflammatory bowel disease [Unknown]
  - Uveitis [Unknown]
  - Adverse drug reaction [Unknown]
  - Drug ineffective [Unknown]
  - Therapy non-responder [Unknown]
  - Fibromyalgia [Unknown]
  - Neuralgia [Unknown]
  - Fatigue [Unknown]
  - Hypersensitivity [Unknown]
